FAERS Safety Report 13832879 (Version 1)
Quarter: 2017Q3

REPORT INFORMATION
  Report Type: Spontaneous
  Country: US (occurrence: US)
  Receive Date: 20170803
  Receipt Date: 20170803
  Transmission Date: 20171127
  Serious: No
  Sender: FDA-Public Use
  Company Number: US-ROCHE-1269174

PATIENT
  Sex: Female

DRUGS (2)
  1. BONIVA [Suspect]
     Active Substance: IBANDRONATE SODIUM
     Indication: OSTEOPOROSIS
     Route: 048
     Dates: end: 201309
  2. ASPIRIN. [Concomitant]
     Active Substance: ASPIRIN
     Dosage: LOW DOSE
     Route: 065

REACTIONS (6)
  - Joint crepitation [Unknown]
  - Eye irritation [Unknown]
  - Head discomfort [Unknown]
  - Neck pain [Unknown]
  - Influenza like illness [Unknown]
  - Palpitations [Unknown]
